FAERS Safety Report 5557939-3 (Version None)
Quarter: 2007Q4

REPORT INFORMATION
  Report Type: 
  Country: None (occurrence: None)
  Receive Date: 20071214
  Receipt Date: 20071203
  Transmission Date: 20080405
  Serious: Yes (Hospitalization)
  Sender: FDA-Public Use
  Company Number: GB-ROCHE-534891

PATIENT
  Age: 60 Year
  Sex: Female
  Weight: 107.1 kg

DRUGS (7)
  1. ORLISTAT [Suspect]
     Indication: OBESITY
     Route: 048
     Dates: start: 20070319
  2. INFUMORPH [Concomitant]
     Indication: PAIN
     Route: 048
  3. ASPIRIN [Concomitant]
     Indication: THROMBOSIS PROPHYLAXIS
     Route: 048
  4. ATENOLOL [Concomitant]
     Indication: HYPERTENSION
     Route: 048
  5. RANITIDINE HCL [Concomitant]
     Route: 048
  6. LEVOTHYROXINE SODIUM [Concomitant]
     Indication: HYPOTHYROIDISM
     Route: 048
  7. AMITRIPTLINE HCL [Concomitant]
     Dosage: INDICATION REPORTED AS: UNKNOWN ?MUSCLE SPASM.
     Route: 048

REACTIONS (1)
  - HERNIA OBSTRUCTIVE [None]
